FAERS Safety Report 9162694 (Version 1)
Quarter: 2013Q1

REPORT INFORMATION
  Report Type: Spontaneous
  Country: US (occurrence: US)
  Receive Date: 20130314
  Receipt Date: 20130314
  Transmission Date: 20140127
  Serious: Yes (Other)
  Sender: FDA-Public Use
  Company Number: US-BRISTOL-MYERS SQUIBB COMPANY-17448192

PATIENT
  Age: 73 Year
  Sex: Female

DRUGS (1)
  1. ORENCIA [Suspect]
     Dosage: LAST INJECTION:26FEB2013
     Route: 042

REACTIONS (3)
  - Cardiac disorder [Unknown]
  - Arthropathy [Unknown]
  - Arthralgia [Unknown]
